FAERS Safety Report 5798946-5 (Version None)
Quarter: 2008Q3

REPORT INFORMATION
  Report Type: 
  Country: None (occurrence: None)
  Receive Date: 20080701
  Receipt Date: 20080617
  Transmission Date: 20090109
  Serious: Yes (Hospitalization)
  Sender: FDA-Public Use
  Company Number: 2008001452

PATIENT
  Age: 79 Year
  Sex: Male
  Weight: 77.9 kg

DRUGS (10)
  1. ERLOTINIB (ERLOTINIB) (TABLET) (ERLOTINIB) [Suspect]
     Indication: NON-SMALL CELL LUNG CANCER
     Dosage: (150 MG, QD), ORAL
     Route: 048
     Dates: start: 20080530, end: 20080603
  2. ENZASTAURIN [Suspect]
     Dosage: (1125 MG), ORAL
     Route: 048
     Dates: start: 20080530, end: 20080530
  3. CALCIUM WITH VITAMIN D (CALCIUM WITH VITAMIN D) [Concomitant]
  4. FOSAMAX [Concomitant]
  5. FLOMAX (MORNIFLUMATE) [Concomitant]
  6. DUTASTERIDE [Concomitant]
  7. ADVICOR (LOVASTATIN) [Concomitant]
  8. MIRAPEX [Concomitant]
  9. ARICEPT [Concomitant]
  10. MULTIVITAMIN [Concomitant]

REACTIONS (2)
  - FALL [None]
  - HEMIPLEGIA [None]
